FAERS Safety Report 6596889-0 (Version None)
Quarter: 2010Q1

REPORT INFORMATION
  Report Type: 
  Country: None (occurrence: None)
  Receive Date: 20100223
  Receipt Date: 20100219
  Transmission Date: 20100710
  Serious: Yes (Disabling)
  Sender: FDA-Public Use
  Company Number: GB-WYE-G02950509

PATIENT
  Age: 67 Year
  Sex: Male

DRUGS (9)
  1. TAZOCIN [Suspect]
     Indication: OESOPHAGEAL OPERATION
     Route: 042
     Dates: start: 20081216, end: 20090106
  2. CEFUROXIME [Concomitant]
     Dosage: UNKNOWN
     Dates: start: 20081213, end: 20081216
  3. ESOMEPRAZOLE [Concomitant]
     Dosage: 40 MG FREQUENCY UNKNOWN
     Route: 042
     Dates: start: 20081214
  4. TINZAPARIN SODIUM [Concomitant]
     Route: 058
     Dates: start: 20081217
  5. GLYCERYL TRINITRATE [Concomitant]
     Dosage: UNKNOWN
  6. METRONIDAZOLE [Concomitant]
     Route: 042
     Dates: start: 20081213
  7. PARACETAMOL [Concomitant]
     Dates: start: 20081214
  8. ASPIRIN [Concomitant]
     Dosage: UNKNOWN
  9. FLUCONAZOLE [Concomitant]
     Route: 042
     Dates: start: 20081214

REACTIONS (2)
  - DYSSTASIA [None]
  - MYALGIA [None]
